FAERS Safety Report 4326104-X (Version None)
Quarter: 2004Q1

REPORT INFORMATION
  Report Type: 
  Country: None (occurrence: None)
  Receive Date: 20040324
  Receipt Date: 20040311
  Transmission Date: 20041129
  Serious: No
  Sender: FDA-Public Use
  Company Number: 04H-028-0253407-00

PATIENT
  Age: 65 Year
  Sex: Male
  Weight: 78 kg

DRUGS (2)
  1. HEPARIN SODIUM [Suspect]
     Indication: ANTICOAGULANT THERAPY
     Dosage: THERAPY DATES: ON ADMISSION - DAY 14
  2. LOW MOLECULAR WEIGHT HEPARIN [Suspect]
     Indication: ANTICOAGULANT THERAPY
     Dosage: THERAPY DATES:  DAY 4 - DAY 14

REACTIONS (7)
  - AORTIC VALVE REPLACEMENT [None]
  - DEEP VEIN THROMBOSIS [None]
  - DISSEMINATED INTRAVASCULAR COAGULATION [None]
  - HAEMATOMA EVACUATION [None]
  - HEPARIN-INDUCED THROMBOCYTOPENIA [None]
  - ILIAC VEIN THROMBOSIS [None]
  - POST PROCEDURAL HAEMORRHAGE [None]
